APPROVED DRUG PRODUCT: FEXOFENADINE HYDROCHLORIDE ALLERGY
Active Ingredient: FEXOFENADINE HYDROCHLORIDE
Strength: 180MG
Dosage Form/Route: TABLET;ORAL
Application: A210137 | Product #001
Applicant: UNIQUE PHARMACEUTICAL LABORATORIES A DIV OF JB CHEMICALS AND PHARMACEUTICALS LTD
Approved: Aug 13, 2018 | RLD: No | RS: No | Type: OTC